FAERS Safety Report 12301096 (Version 2)
Quarter: 2016Q3

REPORT INFORMATION
  Report Type: Spontaneous
  Country: GB (occurrence: GB)
  Receive Date: 20160425
  Receipt Date: 20160811
  Transmission Date: 20161109
  Serious: Yes (Other)
  Sender: FDA-Public Use
  Company Number: GB-BAYER-2016-074088

PATIENT
  Age: 52 Year
  Sex: Male

DRUGS (1)
  1. BETAFERON [Suspect]
     Active Substance: INTERFERON BETA-1B
     Indication: MULTIPLE SCLEROSIS
     Dosage: 250 ?G, QOD
     Route: 058
     Dates: start: 20091009

REACTIONS (4)
  - Urinary tract infection [None]
  - Drug dose omission [None]
  - Infection [None]
  - Cognitive disorder [None]

NARRATIVE: CASE EVENT DATE: 201608
